FAERS Safety Report 22221543 (Version 2)
Quarter: 2023Q2

REPORT INFORMATION
  Report Type: Report from Study
  Country: ES (occurrence: ES)
  Receive Date: 20230418
  Receipt Date: 20230428
  Transmission Date: 20230722
  Serious: No
  Sender: FDA-Public Use
  Company Number: ES-GRUNENTHAL-2023-102867

PATIENT
  Age: 57 Year
  Sex: Female

DRUGS (2)
  1. QUTENZA [Suspect]
     Active Substance: CAPSAICIN
     Indication: Procedural pain
     Dosage: 1 DOSAGE FORM, ONCE
     Route: 065
     Dates: start: 20230227, end: 20230227
  2. QUTENZA [Suspect]
     Active Substance: CAPSAICIN
     Indication: Neuralgia

REACTIONS (4)
  - Drug ineffective [Not Recovered/Not Resolved]
  - Application site pain [Recovered/Resolved]
  - Off label use [Unknown]
  - Product use issue [Unknown]

NARRATIVE: CASE EVENT DATE: 20230227
